FAERS Safety Report 10273232 (Version 1)
Quarter: 2014Q3

REPORT INFORMATION
  Report Type: Spontaneous
  Country: US (occurrence: US)
  Receive Date: 20140702
  Receipt Date: 20140702
  Transmission Date: 20150326
  Serious: No
  Sender: FDA-Public Use
  Company Number: US-009507513-1406USA011661

PATIENT
  Sex: Female

DRUGS (1)
  1. NUVARING [Suspect]
     Active Substance: ETHINYL ESTRADIOL\ETONOGESTREL
     Dosage: DOSE: UNSPECIFIED/ FREQUENCY: ^AS DIRECTED^
     Route: 067
     Dates: start: 20140416

REACTIONS (2)
  - Product quality issue [Unknown]
  - Vaginal discharge [Unknown]
